FAERS Safety Report 9670248 (Version 2)
Quarter: 2013Q4

REPORT INFORMATION
  Report Type: Spontaneous
  Country: US (occurrence: None)
  Receive Date: 20131104
  Receipt Date: 20131119
  Transmission Date: 20140711
  Serious: Yes (Other)
  Sender: FDA-Public Use
  Company Number: AUR-APL-2013-09006

PATIENT
  Age: 56 Year
  Sex: Male
  Weight: 83.45 kg

DRUGS (14)
  1. METFORMIN (METFORMIN) [Suspect]
     Indication: DIABETES MELLITUS
     Dosage: 1000 MG (500 MG, 2 IN 1 D)
  2. NEURONTIN (GABAPENTIN) [Suspect]
     Indication: NEUROPATHY PERIPHERAL
     Dosage: 900 MG (300 MG,  3 IN 1 D)
     Route: 048
     Dates: start: 1995
  3. ACCUPRIL (QUINAPRIL HYDROCHLORIDE) [Suspect]
     Indication: HYPERTENSION
     Dosage: 1 D.
     Route: 048
     Dates: start: 1989
  4. LANTUS (INSULIN GLARGINE) [Suspect]
     Indication: DIABETES MELLITUS
     Dosage: 80 IU (1 IN 1 D)
  5. INSULIN [Suspect]
     Indication: DIABETES MELLITUS
  6. NEXIUM (ESOMEPRAZOLE MAGNESIUM) [Concomitant]
  7. LOVASTATIN [Concomitant]
  8. COUMADIN (COUMARIN) [Concomitant]
  9. PRAVASTATIN [Concomitant]
  10. JANTOVEN (WARFARIN SODIUM) [Concomitant]
  11. CITALOPRAM [Concomitant]
  12. MENTAX (BUTENAFINE HYDROCHLORIDE) [Concomitant]
  13. FOLIC ACID (FOLIC ACID) [Concomitant]
  14. COUMADIN (COUMARIN) [Concomitant]

REACTIONS (5)
  - Diabetes mellitus inadequate control [None]
  - Pulmonary embolism [None]
  - Renal disorder [None]
  - Cerebrovascular accident [None]
  - Brain injury [None]
